FAERS Safety Report 4927746-0 (Version None)
Quarter: 2006Q1

REPORT INFORMATION
  Report Type: 
  Country: None (occurrence: None)
  Receive Date: 20060222
  Receipt Date: 20060206
  Transmission Date: 20060701
  Serious: Yes (Death, Hospitalization)
  Sender: FDA-Public Use
  Company Number: 2006-00263

PATIENT
  Age: 56 Year
  Sex: Female
  Weight: 45.4 kg

DRUGS (1)
  1. VELCADE [Suspect]
     Indication: MULTIPLE MYELOMA

REACTIONS (4)
  - CHOLELITHIASIS [None]
  - HEPATIC CIRRHOSIS [None]
  - INTESTINAL OBSTRUCTION [None]
  - PLATELET COUNT DECREASED [None]
